FAERS Safety Report 15172255 (Version 1)
Quarter: 2018Q3

REPORT INFORMATION
  Report Type: Spontaneous
  Country: US (occurrence: US)
  Receive Date: 20180622
  Receipt Date: 20180622
  Transmission Date: 20181010
  Serious: Yes (Life-Threatening, Hospitalization, Other)
  Sender: FDA-Public Use
  Company Number: None

PATIENT
  Age: 47 Year
  Sex: Female
  Weight: 83.7 kg

DRUGS (2)
  1. NORMAL [Concomitant]
  2. REMICADE [Suspect]
     Active Substance: INFLIXIMAB
     Indication: COLITIS ULCERATIVE
     Dosage: ?          OTHER FREQUENCY:Q 8 WEEKS;?
     Route: 041
     Dates: start: 20180622, end: 20180622

REACTIONS (6)
  - Wheezing [None]
  - Dyspnoea [None]
  - Back pain [None]
  - Nail bed disorder [None]
  - Condition aggravated [None]
  - Chest discomfort [None]

NARRATIVE: CASE EVENT DATE: 20180622
